FAERS Safety Report 14568594 (Version 1)
Quarter: 2018Q1

REPORT INFORMATION
  Report Type: Report from Study
  Country: US (occurrence: US)
  Receive Date: 20180223
  Receipt Date: 20180223
  Transmission Date: 20180509
  Serious: Yes (Hospitalization, Other)
  Sender: FDA-Public Use
  Company Number: US-AMGEN-USASL2018022798

PATIENT
  Age: 73 Year
  Sex: Female

DRUGS (12)
  1. LISINOPRIL. [Concomitant]
     Active Substance: LISINOPRIL
     Dosage: 2.5 MG, QD
  2. ELIQUIS [Concomitant]
     Active Substance: APIXABAN
     Dosage: 2.5 MG, BID
  3. SIMVASTATIN. [Concomitant]
     Active Substance: SIMVASTATIN
     Indication: BLOOD CHOLESTEROL ABNORMAL
     Dosage: 40 MG, QD
  4. XANAX [Concomitant]
     Active Substance: ALPRAZOLAM
     Dosage: 1 MG, BID OR EVERY 8 HOURS
  5. FLECAINIDE ACETATE. [Concomitant]
     Active Substance: FLECAINIDE ACETATE
     Dosage: 50 MG, BID
  6. VITAMIN C [Concomitant]
     Active Substance: ASCORBIC ACID
     Dosage: 1000 MG, QD
  7. PROLIA [Suspect]
     Active Substance: DENOSUMAB
     Indication: OSTEOPOROSIS POSTMENOPAUSAL
     Dosage: UNK, Q6MO
     Route: 065
  8. CALTRATE WITH VITAMIN D [Concomitant]
     Active Substance: CALCIUM CARBONATE\CHOLECALCIFEROL
     Dosage: 600+400 MG, BID
  9. COREG [Concomitant]
     Active Substance: CARVEDILOL
     Dosage: 3.125 MG, BID
  10. VITAMIN B12 [Concomitant]
     Active Substance: CYANOCOBALAMIN
     Dosage: UNK, EVERY 30 DAYS
  11. PRILOSEC [Concomitant]
     Active Substance: OMEPRAZOLE MAGNESIUM
     Dosage: 40 MG, UNK
  12. HYDROCODONE [Concomitant]
     Active Substance: HYDROCODONE
     Indication: BACK PAIN
     Dosage: 1 DF, Q4H

REACTIONS (8)
  - Skin cancer [Unknown]
  - Skin exfoliation [Unknown]
  - Abdominal distension [Unknown]
  - Memory impairment [Unknown]
  - Mobility decreased [Unknown]
  - Atrial fibrillation [Unknown]
  - Alopecia [Unknown]
  - Pruritus [Unknown]
